FAERS Safety Report 7649796-6 (Version None)
Quarter: 2011Q3

REPORT INFORMATION
  Report Type: 
  Country: None (occurrence: None)
  Receive Date: 20110727
  Receipt Date: 20110714
  Transmission Date: 20111222
  Serious: Yes (Other)
  Sender: FDA-Public Use
  Company Number: JPI-P-015173

PATIENT
  Age: 63 Year
  Sex: Female
  Weight: 60.3284 kg

DRUGS (4)
  1. 3 NASAL SPRAYS [Suspect]
  2. 3 ASTHMA INHALERS [Concomitant]
  3. MULTIPLE UNSPECIFIED MEDICATIONS [Concomitant]
  4. XYREM [Suspect]
     Indication: CATAPLEXY
     Dosage: 9 GM (4.5 GM,2 IN 1 D),ORAL ; 7.7 GM (3.85 GM,2 IN 1 D),ORAL
     Route: 048
     Dates: start: 20090401

REACTIONS (30)
  - HALLUCINATION [None]
  - INCONTINENCE [None]
  - PROCEDURAL PAIN [None]
  - DYSPNOEA [None]
  - BLOOD PRESSURE SYSTOLIC INCREASED [None]
  - WEIGHT DECREASED [None]
  - AKATHISIA [None]
  - SOCIAL FEAR [None]
  - HEADACHE [None]
  - DISORIENTATION [None]
  - ASTHMA [None]
  - CRYING [None]
  - ABASIA [None]
  - CONDITION AGGRAVATED [None]
  - BREAST CANCER [None]
  - LIMB INJURY [None]
  - POOR QUALITY SLEEP [None]
  - ANXIETY [None]
  - SLEEP PARALYSIS [None]
  - FALL [None]
  - THINKING ABNORMAL [None]
  - RETCHING [None]
  - RHINORRHOEA [None]
  - SUICIDAL IDEATION [None]
  - VOMITING [None]
  - DEPRESSION [None]
  - DIZZINESS [None]
  - PAIN [None]
  - NAUSEA [None]
  - MOUTH ULCERATION [None]
